FAERS Safety Report 4728716-8 (Version None)
Quarter: 2005Q3

REPORT INFORMATION
  Report Type: 
  Country: None (occurrence: None)
  Receive Date: 20050727
  Receipt Date: 20050718
  Transmission Date: 20060218
  Serious: Yes (Death, Other)
  Sender: FDA-Public Use
  Company Number: 2005-07-1435

PATIENT
  Age: 75 Year
  Sex: Female

DRUGS (7)
  1. INTRON A [Suspect]
     Indication: B-CELL LYMPHOMA
     Dosage: 3MIU/M^2 SUBCUTANEOUS
     Route: 058
  2. FLUDARABINE INJECTABLE [Suspect]
     Indication: B-CELL LYMPHOMA
     Dosage: 25 MG/M2 INTRAVENOUS
     Route: 042
  3. MITOXANTRONE INJECTABLE [Suspect]
     Indication: B-CELL LYMPHOMA
     Dosage: 10 MG/M2 D1 INTRAVENOUS
     Route: 042
  4. DEXAMETHASONE [Suspect]
     Indication: B-CELL LYMPHOMA
     Dosage: 20-40 MG
  5. RITUXIMAB INJECTABLE [Suspect]
     Indication: B-CELL LYMPHOMA
     Dosage: 375 MG/M2 INTRAVENOUS
     Route: 042
  6. CYCLOPHOSPHAMIDE/DOXORUBICIN/VINCRISTINE [Suspect]
     Indication: B-CELL LYMPHOMA
     Dosage: 1 CYCLE
  7. PREDNISONE [Suspect]
     Indication: B-CELL LYMPHOMA
     Dosage: 1 CYCLE (S)

REACTIONS (3)
  - ACUTE MYELOID LEUKAEMIA [None]
  - CYTOGENETIC ANALYSIS ABNORMAL [None]
  - REFUSAL OF TREATMENT BY PATIENT [None]
